FAERS Safety Report 8024673-X (Version None)
Quarter: 2011Q4

REPORT INFORMATION
  Report Type: 
  Country: None (occurrence: None)
  Receive Date: 20111130
  Receipt Date: 20110608
  Transmission Date: 20120403
  Serious: Yes (Other)
  Sender: FDA-Public Use
  Company Number: PHHY2011US50765

PATIENT
  Age: 84 Year
  Sex: Female

DRUGS (17)
  1. AZOPT [Concomitant]
  2. MAGNESIUM (MAGNESIUM) [Concomitant]
  3. FISH OIL (FISH OIL) [Concomitant]
  4. ARGININE (ARGININE) [Concomitant]
  5. COQ10 (UBIDECARENONE) [Concomitant]
  6. VITAMIN B COMPLEX CAP [Concomitant]
  7. TEKTURNA [Suspect]
     Dosage: HALF THE USUAL DOSE, ORAL ; 150 MG, QD
     Route: 048
     Dates: start: 20110531
  8. TEKTURNA [Suspect]
     Dosage: HALF THE USUAL DOSE, ORAL ; 150 MG, QD
     Route: 048
     Dates: start: 20110526
  9. VITAMIN D [Concomitant]
  10. LEVOXYL [Concomitant]
  11. ALBUTEROL SULFATE [Concomitant]
  12. ALPHAGAN [Concomitant]
  13. REQUIP FOR RLS [Concomitant]
  14. ASCORBIC ACID [Concomitant]
  15. GRAPE SEED EXTRACT (VITIS VINIFERA EXTRACT) [Concomitant]
  16. CYANOCOBALAMIN W/FOLIC ACID/PYRIDOXINE (CYANOCOBALAMIN, FOLIC ACID, PY [Concomitant]
  17. CALCIUM CARBONATE [Concomitant]

REACTIONS (4)
  - DIZZINESS [None]
  - NAUSEA [None]
  - INCORRECT DOSE ADMINISTERED [None]
  - HYPERSENSITIVITY [None]
